FAERS Safety Report 8559781-8 (Version None)
Quarter: 2012Q3

REPORT INFORMATION
  Report Type: 
  Country: None (occurrence: None)
  Receive Date: 20120802
  Receipt Date: 20120731
  Transmission Date: 20120928
  Serious: Yes (Hospitalization)
  Sender: FDA-Public Use
  Company Number: AU-PFIZER INC-2012184409

PATIENT
  Age: 78 Year
  Sex: Male

DRUGS (1)
  1. ALDACTONE [Suspect]
     Dosage: 50 MG, 2X/DAY

REACTIONS (2)
  - POLYP COLORECTAL [None]
  - ACCIDENT [None]
